FAERS Safety Report 20222260 (Version 1)
Quarter: 2021Q4

REPORT INFORMATION
  Report Type: Spontaneous
  Country: US (occurrence: None)
  Receive Date: 20211223
  Receipt Date: 20211223
  Transmission Date: 20220303
  Serious: Yes (Death)
  Sender: FDA-Public Use
  Company Number: None

PATIENT
  Sex: Male
  Weight: 14 kg

DRUGS (6)
  1. CYTARABINE [Suspect]
     Active Substance: CYTARABINE
     Dates: end: 20211207
  2. DAUNORUBICIN [Suspect]
     Active Substance: DAUNORUBICIN
     Dates: end: 20211214
  3. DEXAMETHASONE [Suspect]
     Active Substance: DEXAMETHASONE
     Dates: end: 20211219
  4. METHOTREXATE [Suspect]
     Active Substance: METHOTREXATE
     Dates: end: 20211214
  5. PEG/L-ASPARAGINASE [Suspect]
     Active Substance: PEGASPARGASE
     Dates: end: 20211210
  6. VINCRISTINE SULFATE [Suspect]
     Active Substance: VINCRISTINE SULFATE
     Dates: end: 20211214

REACTIONS (20)
  - Abdominal pain [None]
  - Respiratory distress [None]
  - Colitis [None]
  - Neutropenia [None]
  - Hyponatraemia [None]
  - Transaminases increased [None]
  - Serum ferritin increased [None]
  - Metabolic acidosis [None]
  - Hypotension [None]
  - Multiple organ dysfunction syndrome [None]
  - Sepsis [None]
  - Cardiogenic shock [None]
  - Nodal rhythm [None]
  - Pulse absent [None]
  - Cardiac arrest [None]
  - Bradycardia [None]
  - Coagulopathy [None]
  - Blood culture positive [None]
  - Gram stain positive [None]
  - Staphylococcus test positive [None]

NARRATIVE: CASE EVENT DATE: 20211216
